FAERS Safety Report 8846784 (Version 2)
Quarter: 2012Q4

REPORT INFORMATION
  Report Type: 
  Country: US (occurrence: US)
  Receive Date: 20121018
  Receipt Date: 20121114
  Transmission Date: 20130627
  Serious: No
  Sender: FDA-Public Use
  Company Number: US-PFIZER INC-2012254965

PATIENT
  Age: 66 Year
  Sex: Female
  Weight: 68 kg

DRUGS (2)
  1. AROMASIN [Suspect]
     Indication: BREAST CANCER FEMALE
     Dosage: 25 mg, daily
     Route: 048
     Dates: start: 20120603
  2. AROMASIN [Suspect]
     Indication: BREAST CANCER RECURRENT

REACTIONS (3)
  - Trichorrhexis [Not Recovered/Not Resolved]
  - Stress [Recovering/Resolving]
  - Alopecia [Recovering/Resolving]
